FAERS Safety Report 5233398-5 (Version None)
Quarter: 2007Q1

REPORT INFORMATION
  Report Type: 
  Country: None (occurrence: None)
  Receive Date: 20070206
  Receipt Date: 20070124
  Transmission Date: 20070707
  Serious: Yes (Life-Threatening)
  Sender: FDA-Public Use
  Company Number: S07-ESP-00535-01

PATIENT
  Age: 77 Year
  Sex: Male

DRUGS (1)
  1. PRISDAL (CITALOPRAM HYDROCHLORIDE) [Suspect]
     Indication: DEPRESSION
     Dosage: 20 MG QD PO
     Route: 048
     Dates: start: 20061122, end: 20061123

REACTIONS (2)
  - ATRIOVENTRICULAR BLOCK COMPLETE [None]
  - BRADYCARDIA [None]
